FAERS Safety Report 4649621-1 (Version None)
Quarter: 2005Q3

REPORT INFORMATION
  Report Type: 
  Country: None (occurrence: None)
  Receive Date: 20050427
  Receipt Date: 20040129
  Transmission Date: 20060218
  Serious: Yes (Hospitalization)
  Sender: FDA-Public Use
  Company Number: 190892

PATIENT
  Age: 37 Year
  Sex: Female

DRUGS (1)
  1. AVONEX [Suspect]
     Indication: MULTIPLE SCLEROSIS
     Dosage: 20 UG; QW; IM
     Route: 030
     Dates: start: 20030101, end: 20040101

REACTIONS (3)
  - BALANCE DISORDER [None]
  - CONFUSIONAL STATE [None]
  - HYPOTONIA [None]
